FAERS Safety Report 8383359-2 (Version None)
Quarter: 2012Q2

REPORT INFORMATION
  Report Type: 
  Country: None (occurrence: None)
  Receive Date: 20120524
  Receipt Date: 20120514
  Transmission Date: 20120825
  Serious: Yes (Hospitalization)
  Sender: FDA-Public Use
  Company Number: US-BAYER-2012-047498

PATIENT
  Age: 78 Year
  Sex: Male

DRUGS (11)
  1. SAXAGLIPTIN OR PLACEBO [Suspect]
     Indication: TYPE 2 DIABETES MELLITUS
     Dosage: UNK
     Dates: start: 20110506
  2. STATIN [Concomitant]
  3. BETA BLOCKING AGENTS [Concomitant]
  4. CALCIUM CHANNEL BLOCKERS [Concomitant]
  5. INSULIN [Suspect]
     Indication: TYPE 2 DIABETES MELLITUS
     Dosage: 50 IU
  6. ALPHA-ADRENOCEPTOR BLOCKING AGENTS [Concomitant]
  7. ACE INHIBITOR NOS [Concomitant]
  8. PLATELET AGGREGATION INHIBITORS [Concomitant]
  9. ASPIRIN [Suspect]
  10. ANGIOTENSIN II ANTAGONISTS [Concomitant]
  11. FIBRATES [Concomitant]

REACTIONS (3)
  - GASTROINTESTINAL HAEMORRHAGE [None]
  - ASTHENIA [None]
  - ANAEMIA [None]
